FAERS Safety Report 5822431-5 (Version None)
Quarter: 2008Q3

REPORT INFORMATION
  Report Type: 
  Country: None (occurrence: None)
  Receive Date: 20080725
  Receipt Date: 20080318
  Transmission Date: 20090109
  Serious: No
  Sender: FDA-Public Use
  Company Number: US-AMGEN-KDL270704

PATIENT
  Age: 47 Year
  Sex: Male

DRUGS (1)
  1. PROCRIT [Suspect]
     Indication: DRUG USE FOR UNKNOWN INDICATION

REACTIONS (5)
  - CHILLS [None]
  - DIZZINESS [None]
  - EYE PAIN [None]
  - HEADACHE [None]
  - HYPERHIDROSIS [None]
